FAERS Safety Report 4550937-8 (Version None)
Quarter: 2004Q4

REPORT INFORMATION
  Report Type: 
  Country: None (occurrence: None)
  Receive Date: 20041217
  Receipt Date: 20040819
  Transmission Date: 20050328
  Serious: No
  Sender: FDA-Public Use
  Company Number: 2004-BP-07073BP(0)

PATIENT
  Age: 50 Year
  Sex: Female

DRUGS (12)
  1. SPIRIVA [Suspect]
     Indication: CHRONIC OBSTRUCTIVE AIRWAYS DISEASE
     Dosage: 18 MCG(18 MCG, ONCE DAILY), IH
     Route: 055
     Dates: start: 20040729, end: 20040717
  2. SPIRIVA [Suspect]
     Indication: EMPHYSEMA
     Dosage: 18 MCG(18 MCG, ONCE DAILY), IH
     Route: 055
     Dates: start: 20040729, end: 20040717
  3. QVAR (BECLOMETHASONE DIPROPIONATE) [Concomitant]
  4. THEOPHYLLINE [Concomitant]
  5. FORADIL (FORMOTEROL FUMARTATE) [Concomitant]
  6. GUAFENESIN [Concomitant]
  7. ROBAXIN [Concomitant]
  8. ULTRAM [Concomitant]
  9. ALBUTEROL [Concomitant]
  10. NEXIUM [Concomitant]
  11. ACICOPHILUS [Concomitant]
  12. FEMHRT (ANOVLAR) [Concomitant]

REACTIONS (4)
  - DRY MOUTH [None]
  - EYE INFLAMMATION [None]
  - GINGIVAL BLEEDING [None]
  - ORAL DISCOMFORT [None]
